FAERS Safety Report 4596207-3 (Version None)
Quarter: 2005Q1

REPORT INFORMATION
  Report Type: 
  Country: None (occurrence: None)
  Receive Date: 20050225
  Receipt Date: 20050217
  Transmission Date: 20050727
  Serious: Yes (Death)
  Sender: FDA-Public Use
  Company Number: AWBNIASPAND2004-46

PATIENT
  Age: 74 Year
  Sex: Male

DRUGS (9)
  1. NIASPAN [Suspect]
     Indication: DYSLIPIDAEMIA
     Dosage: 750 MG QD PO
     Route: 048
     Dates: start: 20040706, end: 20040811
  2. METOPROLOL TARTRATE [Concomitant]
  3. FUROSEMIDE [Concomitant]
  4. DIGITOXIN TAB [Concomitant]
  5. SIMVASTATIN [Concomitant]
  6. INSULIN [Concomitant]
  7. LISINOPRIL [Concomitant]
  8. ACETYLSALICYLIC ACID/AMINOACETIC ACID [Concomitant]
  9. CHLORDIAZEPOXIDE HCL [Concomitant]

REACTIONS (2)
  - CARDIAC ARREST [None]
  - CARDIAC FAILURE [None]
